FAERS Safety Report 25094818 (Version 1)
Quarter: 2025Q1

REPORT INFORMATION
  Report Type: Spontaneous
  Country: CN (occurrence: CN)
  Receive Date: 20250319
  Receipt Date: 20250319
  Transmission Date: 20250408
  Serious: Yes (Other)
  Sender: NOVARTIS
  Company Number: CN-002147023-NVSC2025CN043486

PATIENT
  Age: 50 Year
  Sex: Male
  Weight: 65 kg

DRUGS (1)
  1. GLIVEC [Suspect]
     Active Substance: IMATINIB MESYLATE
     Indication: Chronic leukaemia
     Dosage: 4.000 DOSAGE FORM, QD (TABLETS)
     Route: 048
     Dates: start: 20250217, end: 20250312

REACTIONS (9)
  - Hypersensitivity [Recovering/Resolving]
  - Oedema [Recovering/Resolving]
  - Eyelid disorder [Recovering/Resolving]
  - Visual impairment [Recovering/Resolving]
  - Ocular discomfort [Recovering/Resolving]
  - Pallor [Recovering/Resolving]
  - Skin turgor decreased [Recovering/Resolving]
  - Dry skin [Recovering/Resolving]
  - Skin fragility [Recovering/Resolving]

NARRATIVE: CASE EVENT DATE: 20250308
